FAERS Safety Report 5465842-2 (Version None)
Quarter: 2007Q3

REPORT INFORMATION
  Report Type: 
  Country: None (occurrence: None)
  Receive Date: 20070924
  Receipt Date: 20070911
  Transmission Date: 20080115
  Serious: Yes (Hospitalization, Other)
  Sender: FDA-Public Use
  Company Number: PHHO2007CA14890

PATIENT
  Age: 52 Year
  Sex: Male
  Weight: 92 kg

DRUGS (8)
  1. ALISKIREN VS PLACEBO [Suspect]
     Indication: ACUTE CORONARY SYNDROME
     Dosage: CODE NOT BROKEN
     Route: 048
     Dates: start: 20070810, end: 20070901
  2. VALSARTAN [Suspect]
     Indication: ACUTE CORONARY SYNDROME
     Dosage: CODE NOT BROKEN
     Route: 048
     Dates: start: 20070810, end: 20070901
  3. METOPROLOL [Concomitant]
  4. LIPITOR [Concomitant]
  5. ASPIRIN [Concomitant]
  6. PLAVIX [Concomitant]
  7. NITROGLYCERIN [Concomitant]
  8. NICOTINE [Concomitant]

REACTIONS (4)
  - GOUT [None]
  - INFECTION [None]
  - PAIN [None]
  - WHITE BLOOD CELL COUNT INCREASED [None]
